FAERS Safety Report 6958013-1 (Version None)
Quarter: 2010Q3

REPORT INFORMATION
  Report Type: 
  Country: None (occurrence: None)
  Receive Date: 20100831
  Receipt Date: 20100825
  Transmission Date: 20110219
  Serious: Yes (Hospitalization)
  Sender: FDA-Public Use
  Company Number: US-BRISTOL-MYERS SQUIBB COMPANY-15256092

PATIENT
  Age: 73 Year
  Sex: Male
  Weight: 113 kg

DRUGS (1)
  1. COUMADIN [Suspect]
     Dosage: CURRENT DOS 7.5MG DLY(MON,WEDNES + FRIDAY)AND 1/2 OF A 7.5MG TABS(3.75MG)ON ALL OTHER DAYS WEEK;
     Dates: start: 19970101

REACTIONS (1)
  - CARDIAC DISORDER [None]
